FAERS Safety Report 18203384 (Version 1)
Quarter: 2020Q3

REPORT INFORMATION
  Report Type: Spontaneous
  Country: FR (occurrence: FR)
  Receive Date: 20200827
  Receipt Date: 20200827
  Transmission Date: 20201103
  Serious: Yes (Hospitalization)
  Sender: FDA-Public Use
  Company Number: FR-MYLANLABS-2020M1073192

PATIENT
  Age: 47 Year
  Sex: Female
  Weight: 50 kg

DRUGS (10)
  1. PACLITAXEL. [Concomitant]
     Active Substance: PACLITAXEL
     Indication: BREAST CANCER
     Dosage: 118.4 MILLIGRAM, CYCLE
     Route: 041
     Dates: start: 20200323, end: 20200608
  2. POLARAMINE [Concomitant]
     Active Substance: DEXCHLORPHENIRAMINE MALEATE
     Indication: CHEMOTHERAPY SIDE EFFECT PROPHYLAXIS
     Dosage: 5 MILLIGRAM, CYCLE
     Route: 042
     Dates: start: 20200323, end: 20200608
  3. EPINEPHRINE. [Suspect]
     Active Substance: EPINEPHRINE
     Indication: PROCEDURAL HYPOTENSION
     Dosage: 9 MILLIGRAM
     Route: 040
     Dates: start: 20200617, end: 20200617
  4. ACUPAN [Suspect]
     Active Substance: NEFOPAM HYDROCHLORIDE
     Indication: PAIN PROPHYLAXIS
     Dosage: 20 MILLIGRAM, TOTAL
     Route: 040
     Dates: start: 20200617, end: 20200617
  5. HYDROXYZINE MYLAN 25 MG, COMPRIM? PELLICUL? S?CABLE [Suspect]
     Active Substance: HYDROXYZINE HYDROCHLORIDE
     Indication: ANAESTHETIC PREMEDICATION
     Dosage: 25 MILLIGRAM, TOTAL
     Route: 048
     Dates: start: 20200617, end: 20200617
  6. AZANTAC [Concomitant]
     Active Substance: RANITIDINE HYDROCHLORIDE
     Indication: CHEMOTHERAPY SIDE EFFECT PROPHYLAXIS
     Dosage: 50 MILLIGRAM, CYCLE
     Route: 042
     Dates: start: 20200323, end: 20200608
  7. METHYLPREDNISOLONE. [Concomitant]
     Active Substance: METHYLPREDNISOLONE
     Dosage: UNK
  8. TRASTUZUMAB. [Concomitant]
     Active Substance: TRASTUZUMAB
     Indication: BREAST CANCER
     Dosage: 148 MILLIGRAM, CYCLE
     Route: 041
     Dates: start: 20200320, end: 20200525
  9. ONDANSETRON [Concomitant]
     Active Substance: ONDANSETRON
     Dosage: UNK
  10. RANITIDINE MYLAN 150 MG, COMPRIM? EFFERVESCENT [Suspect]
     Active Substance: RANITIDINE HYDROCHLORIDE
     Indication: ANAESTHETIC PREMEDICATION
     Dosage: 150 MILLIGRAM, QD
     Route: 048
     Dates: start: 20200617, end: 20200617

REACTIONS (1)
  - Angle closure glaucoma [Recovered/Resolved]

NARRATIVE: CASE EVENT DATE: 20200619
